FAERS Safety Report 21760444 (Version 3)
Quarter: 2023Q1

REPORT INFORMATION
  Report Type: Report from Study
  Country: US (occurrence: US)
  Receive Date: 20221221
  Receipt Date: 20230222
  Transmission Date: 20230418
  Serious: No
  Sender: FDA-Public Use
  Company Number: US-002147023-NVSC2022US293214

PATIENT
  Sex: Female

DRUGS (2)
  1. TREPROSTINIL [Suspect]
     Active Substance: TREPROSTINIL
     Indication: Pulmonary arterial hypertension
     Dosage: 15 NGFKG/MIN, CONT
     Route: 042
     Dates: start: 20200414
  2. TREPROSTINIL [Suspect]
     Active Substance: TREPROSTINIL
     Dosage: 18.8 NG/KG/MIN, CONT
     Route: 042
     Dates: start: 202004

REACTIONS (3)
  - Gastrointestinal disorder [Unknown]
  - Abdominal pain upper [Unknown]
  - Dyspnoea [Unknown]
